FAERS Safety Report 18223431 (Version 2)
Quarter: 2020Q3

REPORT INFORMATION
  Report Type: Spontaneous
  Country: CN (occurrence: CN)
  Receive Date: 20200902
  Receipt Date: 20200915
  Transmission Date: 20201103
  Serious: Yes (Hospitalization)
  Sender: FDA-Public Use
  Company Number: CN-ALLERGAN-2033113US

PATIENT
  Sex: Female

DRUGS (1)
  1. LINACLOTIDE ? BP [Suspect]
     Active Substance: LINACLOTIDE
     Indication: CONSTIPATION
     Dosage: 290 ?G, QAM, 30 MINUTES BEFORE BREAKFAST
     Route: 048
     Dates: start: 20200722, end: 20200727

REACTIONS (6)
  - Constipation [Recovered/Resolved]
  - Haematochezia [Unknown]
  - Anal fissure [Unknown]
  - Dysuria [Unknown]
  - Anal haemorrhage [Unknown]
  - Abnormal faeces [Unknown]
